FAERS Safety Report 6969546-6 (Version None)
Quarter: 2010Q3

REPORT INFORMATION
  Report Type: 
  Country: None (occurrence: None)
  Receive Date: 20100907
  Receipt Date: 20100907
  Transmission Date: 20110219
  Serious: No
  Sender: FDA-Public Use
  Company Number: None

PATIENT
  Age: 57 Year
  Sex: Male
  Weight: 72.5755 kg

DRUGS (5)
  1. MELOXICAM [Suspect]
     Indication: ARTHRITIS
     Dosage: 1TAB 2 X A DAY PO
     Route: 048
     Dates: start: 20100711, end: 20100713
  2. MELOXICAM [Suspect]
     Indication: FIBROMYALGIA
     Dosage: 1TAB 2 X A DAY PO
     Route: 048
     Dates: start: 20100711, end: 20100713
  3. MELOXICAM [Suspect]
     Indication: ARTHRITIS
     Dosage: 1-2 TABLES 1 TIMES A DAY PRN PO
     Route: 048
     Dates: start: 20100829, end: 20100830
  4. MELOXICAM [Suspect]
     Indication: FIBROMYALGIA
     Dosage: 1-2 TABLES 1 TIMES A DAY PRN PO
     Route: 048
     Dates: start: 20100829, end: 20100830
  5. PENICILLAN [Concomitant]

REACTIONS (4)
  - ARTHRALGIA [None]
  - FIBROMYALGIA [None]
  - PRURITUS [None]
  - SWELLING [None]
